FAERS Safety Report 5773510-2 (Version None)
Quarter: 2008Q2

REPORT INFORMATION
  Report Type: 
  Country: None (occurrence: None)
  Receive Date: 20080601
  Receipt Date: 20080226
  Transmission Date: 20081010
  Serious: No
  Sender: FDA-Public Use
  Company Number: US200708000185

PATIENT
  Age: 73 Year
  Sex: Female
  Weight: 73.9 kg

DRUGS (16)
  1. BYETTA [Suspect]
     Indication: TYPE 2 DIABETES MELLITUS
     Dosage: 5 UG, 2/D, SUBCUTANEOUS
     Route: 058
     Dates: start: 20070219
  2. GLIMEPIRIDE [Concomitant]
  3. ACETAMINOPHEN [Concomitant]
  4. GLUCOSE (GLUCOSE) [Concomitant]
  5. AMITRIPTLINE HYDROCHLORIDE TAB [Concomitant]
  6. ASPIRIN [Concomitant]
  7. LEVOTHYROXINE SODIUM [Concomitant]
  8. LISINOPRIL [Concomitant]
  9. MULTIVITAMIN [Concomitant]
  10. IRON (IRON) [Concomitant]
  11. PERDIEM (PSYLLIUM HYDROPHILIC MUCILLOID, SENNA ALEXANDRINA FRUIT) [Concomitant]
  12. SERTRALINE [Concomitant]
  13. ARANESP [Concomitant]
  14. ZOCOR [Concomitant]
  15. TOPROL-XL [Concomitant]
  16. ACTOS [Concomitant]

REACTIONS (10)
  - ANXIETY [None]
  - ARTHRALGIA [None]
  - ASTHENIA [None]
  - BLOOD GLUCOSE DECREASED [None]
  - BLOOD GLUCOSE INCREASED [None]
  - BLOOD PRESSURE INCREASED [None]
  - FATIGUE [None]
  - HAEMOGLOBIN DECREASED [None]
  - INCONTINENCE [None]
  - NERVOUSNESS [None]
